FAERS Safety Report 14430684 (Version 1)
Quarter: 2018Q1

REPORT INFORMATION
  Report Type: Spontaneous
  Country: US (occurrence: US)
  Receive Date: 20180123
  Receipt Date: 20180123
  Transmission Date: 20180509
  Serious: No
  Sender: FDA-Public Use
  Company Number: None

PATIENT
  Age: 81 Year
  Sex: Female
  Weight: 96.75 kg

DRUGS (16)
  1. PREDNISONE. [Concomitant]
     Active Substance: PREDNISONE
  2. MESTINON [Concomitant]
     Active Substance: PYRIDOSTIGMINE BROMIDE
  3. AMBIEN [Concomitant]
     Active Substance: ZOLPIDEM TARTRATE
  4. PREVACID [Concomitant]
     Active Substance: LANSOPRAZOLE
  5. ROZEREM [Suspect]
     Active Substance: RAMELTEON
     Indication: SLEEP DISORDER
     Dosage: ?          QUANTITY:30 TABLET(S);?
     Route: 048
     Dates: start: 20180121, end: 20180122
  6. METHOTREXATE. [Concomitant]
     Active Substance: METHOTREXATE
  7. ENABLEX [Concomitant]
     Active Substance: DARIFENACIN HYDROBROMIDE
  8. ALDACTONE [Concomitant]
     Active Substance: SPIRONOLACTONE
  9. OCUPOWER EYE VITAMINS [Concomitant]
  10. LASIX [Concomitant]
     Active Substance: FUROSEMIDE
  11. CLINDAMYCIN. [Concomitant]
     Active Substance: CLINDAMYCIN
  12. FLEXERIL [Concomitant]
     Active Substance: CYCLOBENZAPRINE HYDROCHLORIDE
  13. FOLIC ACID. [Concomitant]
     Active Substance: FOLIC ACID
  14. PROLIA [Concomitant]
     Active Substance: DENOSUMAB
  15. RELAFEN [Concomitant]
     Active Substance: NABUMETONE
  16. VITAMIN D [Concomitant]
     Active Substance: CHOLECALCIFEROL

REACTIONS (10)
  - Product substitution issue [None]
  - Tremor [None]
  - Anxiety [None]
  - Nervousness [None]
  - Sleep disorder [None]
  - Headache [None]
  - Nightmare [None]
  - Inability to afford medication [None]
  - Insurance issue [None]
  - Dizziness [None]

NARRATIVE: CASE EVENT DATE: 20180122
